FAERS Safety Report 7733691-8 (Version None)
Quarter: 2011Q3

REPORT INFORMATION
  Report Type: 
  Country: None (occurrence: None)
  Receive Date: 20110907
  Receipt Date: 20110830
  Transmission Date: 20111222
  Serious: Yes (Hospitalization)
  Sender: FDA-Public Use
  Company Number: US-NOVOPROD-334303

PATIENT
  Sex: Male
  Weight: 126.8 kg

DRUGS (7)
  1. METFORMIN HCL [Concomitant]
     Indication: TYPE 2 DIABETES MELLITUS
  2. MICARDIS [Concomitant]
     Indication: HYPERTENSION
  3. TERAZOSIN HCL [Concomitant]
     Indication: HYPERTENSION
  4. VICTOZA [Suspect]
     Indication: TYPE 2 DIABETES MELLITUS
     Dosage: 0.6 MG, QD
     Route: 058
     Dates: start: 20110218
  5. VICTOZA [Suspect]
     Dosage: 1.8 MG, QD
     Dates: end: 20110401
  6. PLAVIX [Concomitant]
     Indication: PRODUCT USED FOR UNKNOWN INDICATION
  7. LUPRON DEPOT [Concomitant]
     Indication: PROSTATE CANCER

REACTIONS (1)
  - PANCREATITIS ACUTE [None]
